FAERS Safety Report 26135632 (Version 2)
Quarter: 2025Q4

REPORT INFORMATION
  Report Type: Spontaneous
  Country: EU (occurrence: None)
  Receive Date: 20251209
  Receipt Date: 20251222
  Transmission Date: 20260118
  Serious: Yes (Hospitalization, Other)
  Sender: UCB
  Company Number: EU-Desitin-2025-02887

PATIENT
  Age: 28 Year

DRUGS (18)
  1. BRIVARACETAM [Suspect]
     Active Substance: BRIVARACETAM
     Indication: Seizure
     Dosage: 75 MILLIGRAM, ONCE DAILY (QD), 25 MG-0-50 MG
  2. BRIVARACETAM [Suspect]
     Active Substance: BRIVARACETAM
     Dosage: 100 MILLIGRAM, ONCE DAILY (QD)
  3. BRIVARACETAM [Suspect]
     Active Substance: BRIVARACETAM
     Dosage: 25 MILLIGRAM, ONCE DAILY (QD)
  4. LEVETIRACETAM [Suspect]
     Active Substance: LEVETIRACETAM
     Indication: Seizure
     Dosage: 500 MILLIGRAM, 2X/DAY (BID), 1-0-1
  5. LEVETIRACETAM [Suspect]
     Active Substance: LEVETIRACETAM
     Dosage: 750 MILLIGRAM, 2X/DAY (BID), 1-0-1
  6. LEVETIRACETAM [Suspect]
     Active Substance: LEVETIRACETAM
     Dosage: 1000 MILLIGRAM, 2X/DAY (BID), 1-0-1
  7. LEVETIRACETAM [Suspect]
     Active Substance: LEVETIRACETAM
     Dosage: 1250 MILLIGRAM, ONCE DAILY (QD), 1250 MG-0-1250 MG
  8. VALPROATE SODIUM [Suspect]
     Active Substance: VALPROATE SODIUM
     Indication: Seizure
     Dosage: 1000 MILLIGRAM, 2X/DAY (BID), 2-0-2
  9. VALPROATE SODIUM [Suspect]
     Active Substance: VALPROATE SODIUM
     Dosage: 750 MILLIGRAM, 2X/DAY (BID), 1.5-0-1.5
  10. VALPROATE SODIUM [Suspect]
     Active Substance: VALPROATE SODIUM
     Dosage: 500 MILLIGRAM
  11. OXCARBAZEPINE [Suspect]
     Active Substance: OXCARBAZEPINE
     Indication: Seizure
     Dosage: 300 MILLIGRAM, 2X/DAY (BID), 1-0-1
  12. OXCARBAZEPINE [Suspect]
     Active Substance: OXCARBAZEPINE
     Dosage: 900 MILLIGRAM, ONCE DAILY (QD), 1-0-2
  13. OXCARBAZEPINE [Suspect]
     Active Substance: OXCARBAZEPINE
     Dosage: 600 MILLIGRAM, 2X/DAY (BID), 2-0-2
  14. CENOBAMATE [Concomitant]
     Active Substance: CENOBAMATE
     Indication: Seizure
     Dosage: 350 MILLIGRAM, ONCE DAILY (QD)
  15. CENOBAMATE [Concomitant]
     Active Substance: CENOBAMATE
     Dosage: 200 MILLIGRAM, ONCE DAILY (QD)
  16. CENOBAMATE [Concomitant]
     Active Substance: CENOBAMATE
     Dosage: 300 MILLIGRAM, ONCE DAILY (QD)
  17. TRAZODONE [Concomitant]
     Active Substance: TRAZODONE HYDROCHLORIDE
     Indication: Product used for unknown indication
     Dosage: 150 MILLIGRAM, ONCE DAILY (QD), 0-0-1
  18. DIAZEPAM [Concomitant]
     Active Substance: DIAZEPAM
     Indication: Seizure

REACTIONS (8)
  - Seizure [Unknown]
  - Multiple-drug resistance [Unknown]
  - Nervousness [Unknown]
  - Restlessness [Unknown]
  - Balance disorder [Unknown]
  - Diplopia [Unknown]
  - Ataxia [Unknown]
  - Treatment noncompliance [Unknown]
